FAERS Safety Report 8187905-3 (Version None)
Quarter: 2012Q1

REPORT INFORMATION
  Report Type: 
  Country: None (occurrence: None)
  Receive Date: 20120306
  Receipt Date: 20110617
  Transmission Date: 20120608
  Serious: Yes (Other)
  Sender: FDA-Public Use
  Company Number: US-GLAXOSMITHKLINE-A0935752A

PATIENT
  Sex: Female

DRUGS (1)
  1. AVANDIA [Suspect]
     Indication: DIABETES MELLITUS
     Route: 048
     Dates: start: 20080506, end: 20100827

REACTIONS (4)
  - ANGINA PECTORIS [None]
  - TERMINAL STATE [None]
  - CARDIAC FAILURE CONGESTIVE [None]
  - RENAL FAILURE ACUTE [None]
